FAERS Safety Report 6345160-0 (Version None)
Quarter: 2009Q3

REPORT INFORMATION
  Report Type: 
  Country: None (occurrence: None)
  Receive Date: 20090909
  Receipt Date: 20070619
  Transmission Date: 20100115
  Serious: Yes (Other)
  Sender: FDA-Public Use
  Company Number: US-ASTRAZENECA-2006UW21373

PATIENT
  Age: 19738 Day
  Sex: Female
  Weight: 71.7 kg

DRUGS (5)
  1. SEROQUEL [Suspect]
     Indication: SCHIZOPHRENIA, PARANOID TYPE
     Dosage: 25 MG 1 B.I.D FOR 1 DAY, 2 B.I.D FOR 1 DAY, THEN FOUR TABLETS B.I.D FOR THE MONTH
     Route: 048
     Dates: start: 20020409
  2. SEROQUEL [Suspect]
     Route: 048
  3. ZOLOFT [Concomitant]
     Dates: start: 20060626
  4. CLONIDINE [Concomitant]
     Indication: HYPERTENSION
     Dates: start: 20060804
  5. LYRICA [Concomitant]
     Dates: start: 20060626

REACTIONS (3)
  - HYPERGLYCAEMIA [None]
  - NEUROPATHY PERIPHERAL [None]
  - TYPE 2 DIABETES MELLITUS [None]
